FAERS Safety Report 13101153 (Version 1)
Quarter: 2017Q1

REPORT INFORMATION
  Report Type: Spontaneous
  Country: US (occurrence: US)
  Receive Date: 20170110
  Receipt Date: 20170110
  Transmission Date: 20170428
  Serious: No
  Sender: FDA-Public Use
  Company Number: None

PATIENT
  Age: 53 Year
  Sex: Male
  Weight: 63 kg

DRUGS (2)
  1. LEVOFLOXACIN. [Suspect]
     Active Substance: LEVOFLOXACIN
     Indication: PROSTATE INFECTION
     Route: 048
     Dates: start: 20150108, end: 20150122
  2. LEVOFLOXACIN. [Suspect]
     Active Substance: LEVOFLOXACIN
     Indication: PROSTATIC PAIN
     Route: 048
     Dates: start: 20150108, end: 20150122

REACTIONS (3)
  - Condition aggravated [None]
  - Arthralgia [None]
  - Arthritis [None]

NARRATIVE: CASE EVENT DATE: 20150122
